FAERS Safety Report 25651751 (Version 1)
Quarter: 2025Q3

REPORT INFORMATION
  Report Type: Spontaneous
  Country: US (occurrence: US)
  Receive Date: 20250806
  Receipt Date: 20250806
  Transmission Date: 20251020
  Serious: No
  Sender: EVOKE PHARMA
  Company Number: US-EVOKE PHARMA, INC.-2025EVO000019

PATIENT

DRUGS (1)
  1. GIMOTI [Suspect]
     Active Substance: METOCLOPRAMIDE HYDROCHLORIDE
     Indication: Functional gastrointestinal disorder
     Route: 045
     Dates: start: 202311

REACTIONS (2)
  - Dysgeusia [Unknown]
  - Off label use [Unknown]

NARRATIVE: CASE EVENT DATE: 20231101
